FAERS Safety Report 6062501-2 (Version None)
Quarter: 2009Q1

REPORT INFORMATION
  Report Type: 
  Country: None (occurrence: None)
  Receive Date: 20090202
  Receipt Date: 20090202
  Transmission Date: 20090719
  Serious: Yes (Hospitalization, Other)
  Sender: FDA-Public Use
  Company Number: None

PATIENT
  Age: 77 Year
  Sex: Female
  Weight: 56.6996 kg

DRUGS (2)
  1. RIVASTIGINE 3MG [Suspect]
     Indication: MEMORY IMPAIRMENT
     Dosage: 3MG TWICE A DAY PO
     Route: 048
     Dates: start: 20090129, end: 20090130
  2. RIVASTIGINE 3MG [Suspect]
     Indication: MEMORY IMPAIRMENT
     Dosage: 3MG TWICE A DAY PO
     Route: 048
     Dates: start: 20090130, end: 20090130

REACTIONS (1)
  - UNEVALUABLE EVENT [None]
